FAERS Safety Report 12998900 (Version 2)
Quarter: 2017Q2

REPORT INFORMATION
  Report Type: Spontaneous
  Country: US (occurrence: US)
  Receive Date: 20161205
  Receipt Date: 20170609
  Transmission Date: 20170830
  Serious: No
  Sender: FDA-Public Use
  Company Number: US-TEVA-711990ACC

PATIENT
  Age: 59 Year
  Sex: Female

DRUGS (11)
  1. BACLOFEN. [Concomitant]
     Active Substance: BACLOFEN
     Dosage: 1.5 DOSAGE FORMS DAILY; 8 AM 1 TAB AND 8 PM 1/2 TAB
  2. VALSARTAN AND HYDROCHLOROTHIAZIDE [Concomitant]
     Active Substance: HYDROCHLOROTHIAZIDE\VALSARTAN
     Dosage: 160MG /25MG
  3. NORTRIPTYLINE [Concomitant]
     Active Substance: NORTRIPTYLINE
     Dosage: 50 MILLIGRAM DAILY; SOD
  4. AMPYRA [Concomitant]
     Active Substance: DALFAMPRIDINE
  5. CLOBETASOL PROPIONATE. [Concomitant]
     Active Substance: CLOBETASOL PROPIONATE
     Dosage: .1 PERCENT DAILY; AM AND PM
  6. DICLOFENAC SODIUM. [Concomitant]
     Active Substance: DICLOFENAC SODIUM
     Dosage: 100 MILLIGRAM DAILY;
  7. PANTOPRAZOLE [Concomitant]
     Active Substance: PANTOPRAZOLE
  8. COPAXONE [Suspect]
     Active Substance: GLATIRAMER ACETATE
  9. ATORVASTATIN [Concomitant]
     Active Substance: ATORVASTATIN
     Dosage: 20 MILLIGRAM DAILY;
  10. COPAXONE [Suspect]
     Active Substance: GLATIRAMER ACETATE
     Indication: MULTIPLE SCLEROSIS
     Route: 058
     Dates: start: 201404
  11. PROPRANOLOL ER [Concomitant]
     Dosage: 120 MILLIGRAM DAILY; CAPLETS

REACTIONS (6)
  - Fall [Not Recovered/Not Resolved]
  - Injection site haemorrhage [Unknown]
  - Inappropriate schedule of drug administration [Unknown]
  - Injection site cellulitis [Recovered/Resolved]
  - Injection site pain [Recovered/Resolved]
  - Injection site erythema [Recovered/Resolved]

NARRATIVE: CASE EVENT DATE: 20160928
